FAERS Safety Report 17201339 (Version 1)
Quarter: 2019Q4

REPORT INFORMATION
  Report Type: Other
  Country: US (occurrence: US)
  Receive Date: 20191226
  Receipt Date: 20191226
  Transmission Date: 20200122
  Serious: Yes (Death)
  Sender: FDA-Public Use
  Company Number: US-WES PHARMA INC-2077764

PATIENT
  Age: 51 Year
  Sex: Female
  Weight: 134.09 kg

DRUGS (8)
  1. GABAPENTIN. [Suspect]
     Active Substance: GABAPENTIN
     Route: 065
  2. OXYCODONE HYDROCHLORIDE. [Suspect]
     Active Substance: OXYCODONE HYDROCHLORIDE
     Indication: PRODUCT USED FOR UNKNOWN INDICATION
     Route: 065
  3. TRAZODONE [Concomitant]
     Active Substance: TRAZODONE HYDROCHLORIDE
     Route: 065
  4. OXYCODONE AND ACETAMINOPHEN TABLETS USP 10 MG/325 MG; ANDA# 207510 [Suspect]
     Active Substance: ACETAMINOPHEN\OXYCODONE HYDROCHLORIDE
     Route: 065
  5. ZOLPIDEM [Concomitant]
     Active Substance: ZOLPIDEM TARTRATE
     Route: 065
  6. OXYMORPHONE [Concomitant]
     Active Substance: OXYMORPHONE
     Route: 065
  7. PAROXETINE. [Concomitant]
     Active Substance: PAROXETINE
     Route: 065
  8. M-CPP (META-CHLOROPHENYLPIPERAZINE) [Concomitant]
     Route: 065

REACTIONS (3)
  - Toxicity to various agents [Fatal]
  - Disorientation [Unknown]
  - Accidental poisoning [Fatal]
